FAERS Safety Report 8620679-8 (Version None)
Quarter: 2012Q3

REPORT INFORMATION
  Report Type: 
  Country: None (occurrence: None)
  Receive Date: 20120824
  Receipt Date: 20120813
  Transmission Date: 20120928
  Serious: Yes (Hospitalization)
  Sender: FDA-Public Use
  Company Number: DE-BAXTER-2012BAX013813

PATIENT
  Sex: Female
  Weight: 64 kg

DRUGS (3)
  1. TRANCOLONG [Suspect]
     Dosage: NOT REPORTED
     Dates: start: 20120701
  2. KIOVIG [Suspect]
     Dosage: 10G/100ML
     Route: 042
     Dates: start: 20101001
  3. DOLO VISANO                        /00210001/ [Suspect]
     Dosage: NOT REPORTED

REACTIONS (5)
  - PROCTITIS [None]
  - ANAL HAEMORRHAGE [None]
  - ABDOMINAL PAIN [None]
  - COLONIC POLYP [None]
  - DIARRHOEA HAEMORRHAGIC [None]
